FAERS Safety Report 5650370-1 (Version None)
Quarter: 2008Q1

REPORT INFORMATION
  Report Type: 
  Country: None (occurrence: None)
  Receive Date: 20080305
  Receipt Date: 20080225
  Transmission Date: 20080703
  Serious: Yes (Death, Life-Threatening)
  Sender: FDA-Public Use
  Company Number: GB-BRISTOL-MYERS SQUIBB COMPANY-14099956

PATIENT
  Age: 79 Year
  Sex: Female

DRUGS (9)
  1. METFORMIN HCL [Suspect]
     Route: 048
     Dates: end: 20080212
  2. AMITRIPTYLINE HCL [Concomitant]
     Route: 048
     Dates: end: 20080212
  3. AMLODIPINE [Concomitant]
     Route: 048
     Dates: end: 20080212
  4. ENALAPRIL MALEATE [Concomitant]
     Route: 048
     Dates: end: 20080212
  5. FUROSEMIDE [Concomitant]
     Route: 048
     Dates: end: 20080212
  6. LANSOPRAZOLE [Concomitant]
     Route: 048
     Dates: end: 20080212
  7. NOVOLOG MIX 70/30 [Concomitant]
     Route: 058
  8. SIMVASTATIN [Concomitant]
     Route: 048
     Dates: end: 20080212
  9. QUININE [Concomitant]
     Route: 048
     Dates: end: 20080212

REACTIONS (3)
  - ISCHAEMIA [None]
  - METABOLIC ACIDOSIS [None]
  - MULTI-ORGAN FAILURE [None]
